FAERS Safety Report 5684058-8 (Version None)
Quarter: 2008Q1

REPORT INFORMATION
  Report Type: 
  Country: None (occurrence: None)
  Receive Date: 20080328
  Receipt Date: 20080318
  Transmission Date: 20080703
  Serious: Yes (Hospitalization, Other)
  Sender: FDA-Public Use
  Company Number: US-AMGEN-QUU270345

PATIENT
  Sex: Female

DRUGS (2)
  1. ENBREL [Suspect]
     Indication: RHEUMATOID ARTHRITIS
     Route: 058
     Dates: start: 20040101
  2. ENBREL [Suspect]
     Indication: SJOGREN'S SYNDROME

REACTIONS (11)
  - ARTHRALGIA [None]
  - CYST [None]
  - FUNGAL SKIN INFECTION [None]
  - GASTROOESOPHAGEAL REFLUX DISEASE [None]
  - IRRITABLE BOWEL SYNDROME [None]
  - JOINT SWELLING [None]
  - OTITIS MEDIA [None]
  - RHEUMATOID ARTHRITIS [None]
  - SINUSITIS [None]
  - TENDON RUPTURE [None]
  - TOOTH INFECTION [None]
